FAERS Safety Report 11071042 (Version 3)
Quarter: 2015Q2

REPORT INFORMATION
  Report Type: Report from Study
  Country: AU (occurrence: AU)
  Receive Date: 20150428
  Receipt Date: 20150603
  Transmission Date: 20150821
  Serious: Yes (Other)
  Sender: FDA-Public Use
  Company Number: AU-ASTRAZENECA-2013SE65872

PATIENT
  Age: 30288 Day
  Sex: Male

DRUGS (3)
  1. ZOLADEX [Suspect]
     Active Substance: GOSERELIN ACETATE
     Indication: PROSTATE CANCER
     Route: 058
     Dates: start: 20121201
  2. FLU VACCINATION [Concomitant]
     Active Substance: INFLUENZA VIRUS VACCINE
     Dates: start: 20150417
  3. CARTIA XT [Concomitant]
     Active Substance: DILTIAZEM HYDROCHLORIDE
     Indication: ANTICOAGULANT THERAPY
     Dosage: INTERMITTENTLY

REACTIONS (2)
  - Malignant neoplasm progression [Unknown]
  - Hypotension [Unknown]

NARRATIVE: CASE EVENT DATE: 20150417
